FAERS Safety Report 23095376 (Version 1)
Quarter: 2023Q4

REPORT INFORMATION
  Report Type: Spontaneous
  Country: US (occurrence: None)
  Receive Date: 20231019
  Receipt Date: 20231019
  Transmission Date: 20240110
  Serious: No
  Sender: FDA-Public Use
  Company Number: None

PATIENT
  Age: 64 Year
  Sex: Female

DRUGS (2)
  1. ENBREL [Suspect]
     Active Substance: ETANERCEPT
     Indication: Product used for unknown indication
     Dosage: FREQUENCY : AS DIRECTED;?
     Route: 058
     Dates: start: 202302
  2. H.P. ACTHAR [Suspect]
     Active Substance: CORTICOTROPIN

REACTIONS (3)
  - Nasopharyngitis [None]
  - Bronchitis [None]
  - Therapy interrupted [None]
